FAERS Safety Report 24028910 (Version 1)
Quarter: 2024Q2

REPORT INFORMATION
  Report Type: Report from Study
  Country: US (occurrence: US)
  Receive Date: 20240628
  Receipt Date: 20240628
  Transmission Date: 20240716
  Serious: Yes (Death, Hospitalization)
  Sender: FDA-Public Use
  Company Number: US-PFIZER INC-202400093079

PATIENT
  Age: 45 Year
  Sex: Female

DRUGS (5)
  1. BRAFTOVI [Suspect]
     Active Substance: ENCORAFENIB
     Dosage: 75MG TAKE 5 CAPS DAILY
     Route: 048
     Dates: start: 20230816
  2. MEKTOVI [Suspect]
     Active Substance: BINIMETINIB
     Dosage: 15MG 3 TABS TWICE A DAY
     Route: 048
     Dates: start: 20230816
  3. OXYCODONE [Concomitant]
     Active Substance: OXYCODONE\OXYCODONE HYDROCHLORIDE
     Dosage: UNK
  4. LEVETIRACETAM [Concomitant]
     Active Substance: LEVETIRACETAM
     Dosage: UNK
  5. LEVOTHYROXINE [Concomitant]
     Active Substance: LEVOTHYROXINE\LEVOTHYROXINE SODIUM
     Dosage: UNK

REACTIONS (4)
  - Death [Fatal]
  - Second primary malignancy [Recovering/Resolving]
  - Brain neoplasm [Recovering/Resolving]
  - Intracranial tumour haemorrhage [Recovering/Resolving]

NARRATIVE: CASE EVENT DATE: 20240417
